FAERS Safety Report 14107403 (Version 1)
Quarter: 2017Q4

REPORT INFORMATION
  Report Type: Spontaneous
  Country: BR (occurrence: BR)
  Receive Date: 20171019
  Receipt Date: 20171019
  Transmission Date: 20180321
  Serious: Yes (Other)
  Sender: FDA-Public Use
  Company Number: PHHY2017BR153259

PATIENT
  Age: 31 Year
  Sex: Female
  Weight: 69 kg

DRUGS (3)
  1. EXODUS//NICOTINE [Concomitant]
     Active Substance: NICOTINE
     Indication: DEPRESSION
     Dosage: 1 DF, MORNING
     Route: 048
     Dates: start: 201603, end: 201707
  2. LYLLAS [Suspect]
     Active Substance: DROSPIRENONE\ETHINYL ESTRADIOL
     Indication: ORAL CONTRACEPTION
     Dosage: UNK
     Route: 048
  3. LAMOTRIGINE. [Concomitant]
     Active Substance: LAMOTRIGINE
     Indication: DEPRESSION
     Dosage: 1 DF, AT NIGHT
     Route: 048
     Dates: start: 201603

REACTIONS (3)
  - Menstrual disorder [Unknown]
  - Vomiting [Recovered/Resolved]
  - Tonsillitis [Unknown]

NARRATIVE: CASE EVENT DATE: 20171006
